FAERS Safety Report 19508791 (Version 4)
Quarter: 2022Q4

REPORT INFORMATION
  Report Type: Report from Study
  Country: US (occurrence: US)
  Receive Date: 20210709
  Receipt Date: 20221229
  Transmission Date: 20230112
  Serious: Yes (Death, Other)
  Sender: FDA-Public Use
  Company Number: US-ACADIA PHARMACEUTICALS INC.-ACA-2021-PIM-002250

PATIENT
  Age: 75 Year
  Sex: Female

DRUGS (12)
  1. NUPLAZID [Suspect]
     Active Substance: PIMAVANSERIN TARTRATE
     Indication: Parkinson^s disease psychosis
     Dosage: 34 MILLIGRAM, QD
     Route: 065
     Dates: start: 202012
  2. NUPLAZID [Suspect]
     Active Substance: PIMAVANSERIN TARTRATE
     Indication: Hallucination
     Dosage: 34 MILLIGRAM, QD
     Route: 048
     Dates: start: 202105, end: 20221128
  3. NUPLAZID [Suspect]
     Active Substance: PIMAVANSERIN TARTRATE
     Indication: Delusion
  4. QUETIAPINE [Concomitant]
     Active Substance: QUETIAPINE
  5. CLONAZEPAM [Concomitant]
     Active Substance: CLONAZEPAM
  6. TRAZODONE [Concomitant]
     Active Substance: TRAZODONE HYDROCHLORIDE
  7. DONEPEZIL [Concomitant]
     Active Substance: DONEPEZIL
  8. MEMANTINE [Concomitant]
     Active Substance: MEMANTINE
  9. DULOXETINE [Concomitant]
     Active Substance: DULOXETINE
  10. PREGABALIN [Concomitant]
     Active Substance: PREGABALIN
  11. ROPINIROLE [Concomitant]
     Active Substance: ROPINIROLE
  12. FLUDROCORTISONE [Concomitant]
     Active Substance: FLUDROCORTISONE

REACTIONS (3)
  - Death [Recovered/Resolved]
  - Therapeutic product effect incomplete [Unknown]
  - Hallucination [Unknown]

NARRATIVE: CASE EVENT DATE: 20221128
